FAERS Safety Report 6078194-4 (Version None)
Quarter: 2009Q1

REPORT INFORMATION
  Report Type: 
  Country: None (occurrence: None)
  Receive Date: 20090213
  Receipt Date: 20090204
  Transmission Date: 20090719
  Serious: Yes (Other)
  Sender: FDA-Public Use
  Company Number: PHHY2009CL04160

PATIENT
  Age: 81 Year
  Sex: Male

DRUGS (6)
  1. TAREG D [Suspect]
     Indication: HYPERTENSION
     Dosage: 160/12.5 MG, 1 DF/DAY
  2. ADALAT [Concomitant]
  3. HIDRORONOL [Concomitant]
  4. DILATREND [Concomitant]
  5. DIGOXIN [Concomitant]
  6. ESPIRONOLACTONA [Concomitant]

REACTIONS (1)
  - ARRHYTHMIA [None]
